FAERS Safety Report 13136431 (Version 1)
Quarter: 2017Q1

REPORT INFORMATION
  Report Type: Report from Study
  Country: US (occurrence: US)
  Receive Date: 20170122
  Receipt Date: 20170122
  Transmission Date: 20170428
  Serious: Yes (Hospitalization)
  Sender: FDA-Public Use
  Company Number: US-EXELIXIS-CABO-17007984

PATIENT
  Age: 72 Year
  Sex: Male

DRUGS (10)
  1. FUROSEMIDE. [Concomitant]
     Active Substance: FUROSEMIDE
  2. AMLODIPINE [Concomitant]
     Active Substance: AMLODIPINE BESYLATE
  3. METOPROLOL. [Concomitant]
     Active Substance: METOPROLOL
  4. LEVOTHYROXINE. [Concomitant]
     Active Substance: LEVOTHYROXINE
  5. METFORMIN [Concomitant]
     Active Substance: METFORMIN HYDROCHLORIDE
  6. LISINOPRIL. [Concomitant]
     Active Substance: LISINOPRIL
  7. CABOMETYX [Suspect]
     Active Substance: CABOZANTINIB S-MALATE
     Indication: RENAL CANCER
     Dosage: 60 MG, QD
     Route: 048
     Dates: start: 20160511, end: 201609
  8. CABOMETYX [Suspect]
     Active Substance: CABOZANTINIB S-MALATE
     Dosage: 40 MG, QD
     Route: 048
     Dates: start: 201609, end: 201701
  9. GLIPIZIDE. [Concomitant]
     Active Substance: GLIPIZIDE
  10. PRAVASTATIN. [Concomitant]
     Active Substance: PRAVASTATIN

REACTIONS (2)
  - Disease progression [Unknown]
  - Mental status changes [Unknown]

NARRATIVE: CASE EVENT DATE: 20170103
